FAERS Safety Report 8557185-5 (Version None)
Quarter: 2012Q3

REPORT INFORMATION
  Report Type: 
  Country: None (occurrence: None)
  Receive Date: 20120801
  Receipt Date: 20120724
  Transmission Date: 20120928
  Serious: Yes (Other)
  Sender: FDA-Public Use
  Company Number: PHHY2011US21324

PATIENT
  Sex: Female

DRUGS (2)
  1. ILARIS [Suspect]
     Indication: IDIOPATHIC URTICARIA
     Dosage: 150 MG, EVERY 56 DAYS
     Route: 058
     Dates: start: 20100126, end: 20120724
  2. ILARIS [Suspect]
     Indication: CRYOPYRIN ASSOCIATED PERIODIC SYNDROME
     Dosage: 150 MG, EVERY EIGHT WEEKS
     Route: 058
     Dates: start: 20080101

REACTIONS (3)
  - HAEMATOCHEZIA [None]
  - BURNING SENSATION [None]
  - ERYTHEMA [None]
